FAERS Safety Report 6132827-2 (Version None)
Quarter: 2009Q1

REPORT INFORMATION
  Report Type: 
  Country: None (occurrence: None)
  Receive Date: 20090326
  Receipt Date: 20090319
  Transmission Date: 20090719
  Serious: Yes (Other)
  Sender: FDA-Public Use
  Company Number: US-BAYER-200913005NA

PATIENT
  Age: 47 Year
  Sex: Male

DRUGS (2)
  1. NEXAVAR [Suspect]
     Indication: HEPATIC NEOPLASM MALIGNANT
     Dosage: TOTAL DAILY DOSE: 800 MG  UNIT DOSE: 200 MG
     Route: 048
     Dates: start: 20090124, end: 20090129
  2. NEXAVAR [Suspect]
     Dosage: TOTAL DAILY DOSE: 400 MG  UNIT DOSE: 200 MG
     Route: 048
     Dates: start: 20090130, end: 20090227

REACTIONS (6)
  - ALOPECIA [None]
  - CONSTIPATION [None]
  - EPISTAXIS [None]
  - HALLUCINATIONS, MIXED [None]
  - HEADACHE [None]
  - NAUSEA [None]
